FAERS Safety Report 17757776 (Version 19)
Quarter: 2022Q4

REPORT INFORMATION
  Report Type: Report from Study
  Country: CA (occurrence: CA)
  Receive Date: 20200507
  Receipt Date: 20221125
  Transmission Date: 20230113
  Serious: Yes (Hospitalization, Other)
  Sender: FDA-Public Use
  Company Number: NVSC2020CA122648

PATIENT
  Age: 33 Year
  Sex: Female
  Weight: 116.1 kg

DRUGS (4)
  1. OFATUMUMAB [Suspect]
     Active Substance: OFATUMUMAB
     Indication: Multiple sclerosis relapse
     Dosage: 20 MG, Q4W
     Route: 058
     Dates: start: 20190925, end: 20200411
  2. OFATUMUMAB [Suspect]
     Active Substance: OFATUMUMAB
     Indication: Multiple sclerosis relapse
     Dosage: 20 MG0.4 ML
     Route: 058
     Dates: start: 20191002, end: 20191009
  3. ADVIL [Concomitant]
     Active Substance: IBUPROFEN
     Indication: Abdominal pain
     Dosage: UNK
     Route: 065
     Dates: start: 20200420, end: 20200423
  4. ADVIL [Concomitant]
     Active Substance: IBUPROFEN
     Indication: Migraine

REACTIONS (3)
  - Abscess [Recovered/Resolved]
  - Appendicitis perforated [Recovered/Resolved]
  - Mesenteric vein thrombosis [Recovered/Resolved]

NARRATIVE: CASE EVENT DATE: 20200428
